FAERS Safety Report 18042826 (Version 1)
Quarter: 2020Q3

REPORT INFORMATION
  Report Type: Report from Study
  Country: FR (occurrence: FR)
  Receive Date: 20200720
  Receipt Date: 20200720
  Transmission Date: 20201103
  Serious: Yes (Death, Other)
  Sender: FDA-Public Use
  Company Number: FR-ACCORD-191788

PATIENT

DRUGS (4)
  1. CYTARABINE/CYTARABINE HYDROCHLORIDE/CYTARABINE OCFOSFATE [Suspect]
     Active Substance: CYTARABINE
     Indication: MANTLE CELL LYMPHOMA
     Dosage: EVERY 12 HOURS DAILY FROM DAY ?6 TO DAY ?3
  2. ETOPOSIDE. [Suspect]
     Active Substance: ETOPOSIDE
     Indication: MANTLE CELL LYMPHOMA
     Dosage: EVERY 12 HOURS DAILY FROM DAY ?6 TO DAY ?3
  3. BENDAMUSTINE/BENDAMUSTINE HYDROCHLORIDE [Suspect]
     Active Substance: BENDAMUSTINE HYDROCHLORIDE
     Indication: MANTLE CELL LYMPHOMA
     Dosage: ON DAYS ?8 AND ?7
  4. MELPHALAN. [Suspect]
     Active Substance: MELPHALAN
     Indication: MANTLE CELL LYMPHOMA
     Dosage: ON DAY ?2

REACTIONS (3)
  - Off label use [Unknown]
  - Sepsis [Fatal]
  - Gastrointestinal bacterial infection [Fatal]
